FAERS Safety Report 10803733 (Version 2)
Quarter: 2016Q2

REPORT INFORMATION
  Report Type: Spontaneous
  Country: US (occurrence: US)
  Receive Date: 20150217
  Receipt Date: 20160614
  Transmission Date: 20160815
  Serious: Yes (Other)
  Sender: FDA-Public Use
  Company Number: US-TEVA-541585USA

PATIENT
  Sex: Female

DRUGS (1)
  1. PARAGARD T 380A [Suspect]
     Active Substance: COPPER
     Indication: CONTRACEPTION
     Route: 015
     Dates: start: 20140224, end: 20150126

REACTIONS (6)
  - Pregnancy with contraceptive device [Unknown]
  - Caesarean section [Recovered/Resolved]
  - Pre-eclampsia [Unknown]
  - Amniotic cavity infection [Unknown]
  - Cervix disorder [Unknown]
  - Live birth [Unknown]

NARRATIVE: CASE EVENT DATE: 20150213
